FAERS Safety Report 6729676-0 (Version None)
Quarter: 2010Q2

REPORT INFORMATION
  Report Type: 
  Country: None (occurrence: None)
  Receive Date: 20100518
  Receipt Date: 20100511
  Transmission Date: 20101027
  Serious: Yes (Other)
  Sender: FDA-Public Use
  Company Number: JP-JNJFOC-20100505604

PATIENT
  Sex: Female

DRUGS (1)
  1. NIZORAL [Suspect]
     Indication: VULVOVAGINAL CANDIDIASIS
     Route: 061

REACTIONS (1)
  - UTERINE HAEMORRHAGE [None]
